FAERS Safety Report 5646212-0 (Version None)
Quarter: 2008Q1

REPORT INFORMATION
  Report Type: 
  Country: None (occurrence: None)
  Receive Date: 20080131
  Receipt Date: 20071203
  Transmission Date: 20080703
  Serious: No
  Sender: FDA-Public Use
  Company Number: 163-21880-07120120

PATIENT
  Age: 48 Year
  Sex: Female

DRUGS (1)
  1. REVLIMID [Suspect]
     Indication: ANAEMIA HAEMOLYTIC AUTOIMMUNE
     Dosage: 25 MG, DAILY X 21 DAYS, EVERY 4 WEEKS, ORAL
     Route: 048
     Dates: start: 20070816

REACTIONS (2)
  - HYPERHIDROSIS [None]
  - NASOPHARYNGITIS [None]
